FAERS Safety Report 10882771 (Version 2)
Quarter: 2015Q2

REPORT INFORMATION
  Report Type: Spontaneous
  Country: US (occurrence: US)
  Receive Date: 20150303
  Receipt Date: 20150429
  Transmission Date: 20150821
  Serious: Yes (Death, Life-Threatening)
  Sender: FDA-Public Use
  Company Number: US-OTSUKA-US-2015-11042

PATIENT
  Age: 81 Year
  Sex: Male
  Weight: 73.9 kg

DRUGS (34)
  1. LIDOCAINE. [Concomitant]
     Active Substance: LIDOCAINE
     Indication: MUSCULOSKELETAL PAIN
     Dosage: UNK
     Route: 061
     Dates: start: 20141117
  2. SODIUM CHLORIDE. [Concomitant]
     Active Substance: SODIUM CHLORIDE
     Dosage: 500ML, 1 IN 1 DAY
     Route: 042
     Dates: start: 20141118
  3. AMLODIPINE [Concomitant]
     Active Substance: AMLODIPINE BESYLATE
     Indication: HYPERTENSION
     Dosage: 5 MG, 1 IN 1 DAY
     Route: 048
     Dates: start: 20141118
  4. PHYTONADIONE. [Concomitant]
     Active Substance: PHYTONADIONE
     Indication: HYPOPROTHROMBINAEMIA
     Dosage: 10 MG, 1 IN 1 DAY
     Route: 048
     Dates: start: 20141122
  5. OSELTAMIVIR [Concomitant]
     Active Substance: OSELTAMIVIR
     Indication: LUNG INFECTION
     Dosage: 150 MG, IN 1 DAY
     Route: 048
     Dates: start: 20141127
  6. POTASSIUM CHLORIDE. [Concomitant]
     Active Substance: POTASSIUM CHLORIDE
     Dosage: 2 DOSE(S), 2 IN 1 DAY
     Route: 048
     Dates: start: 20141123
  7. CLINDAMYCIN [Concomitant]
     Active Substance: CLINDAMYCIN\CLINDAMYCIN PHOSPHATE
     Indication: STAPHYLOCOCCAL INFECTION
     Dosage: 600 MG, UNK
     Route: 042
     Dates: start: 20141126
  8. CARBIDOPA. [Concomitant]
     Active Substance: CARBIDOPA
     Indication: CONFUSIONAL STATE
     Dosage: 100 MG, 1 IN 1 DAY
     Route: 048
     Dates: start: 20141117
  9. LEVODOPA [Concomitant]
     Active Substance: LEVODOPA
     Indication: CONFUSIONAL STATE
     Dosage: 100 MG, 1 IN 1 DAY
     Route: 048
     Dates: start: 20141117
  10. MORPHINE SULPHATE [Concomitant]
     Active Substance: MORPHINE SULFATE
     Indication: ARTHRALGIA
     Dosage: 3 MG, 1 IN 1 DAY
     Route: 042
     Dates: start: 20141118
  11. CARVEDILOL. [Concomitant]
     Active Substance: CARVEDILOL
     Indication: HYPERTENSION
     Dosage: 6.25 MG, UNK
     Route: 048
     Dates: start: 20141118
  12. CASPOFUNGIN [Concomitant]
     Active Substance: CASPOFUNGIN
     Indication: PROPHYLAXIS
     Dosage: 70 MG, UNK
     Route: 042
     Dates: start: 20141126
  13. KLOR-CON [Concomitant]
     Active Substance: POTASSIUM CHLORIDE
     Indication: BLOOD POTASSIUM DECREASED
     Dosage: 40 MG, UNK
     Route: 048
     Dates: start: 20141117
  14. POTASSIUM CHLORIDE. [Concomitant]
     Active Substance: POTASSIUM CHLORIDE
     Indication: HYPOKALAEMIA
     Dosage: 40 MEQ, UNK
     Route: 048
     Dates: start: 20141120
  15. PHENAZOPYRIDINE HCL [Concomitant]
     Active Substance: PHENAZOPYRIDINE HYDROCHLORIDE
     Indication: URINARY TRACT INFECTION
     Dosage: 100 MG, 3 IN 1 DAY
     Route: 048
     Dates: start: 20141125
  16. SODIUM CHLORIDE. [Concomitant]
     Active Substance: SODIUM CHLORIDE
     Indication: FLUID REPLACEMENT
     Dosage: 10 ML, 1 IN 2 HOUR
     Route: 042
     Dates: start: 20141117
  17. HYDROCORTISONE. [Concomitant]
     Active Substance: HYDROCORTISONE
     Indication: STAPHYLOCOCCAL INFECTION
     Dosage: 25 MG, 1 IN 1 DAY
     Route: 042
     Dates: start: 20141118
  18. LINEZOLID. [Concomitant]
     Active Substance: LINEZOLID
     Indication: STAPHYLOCOCCAL INFECTION
     Dosage: 600 MG, UNK
     Route: 048
     Dates: start: 20141125
  19. TIGECYCLINE [Concomitant]
     Active Substance: TIGECYCLINE
     Indication: BACTERAEMIA
     Dosage: 100 MG, UNK
     Route: 065
     Dates: start: 20141127
  20. NAFCILLIN SODIUM. [Concomitant]
     Active Substance: NAFCILLIN SODIUM
     Indication: STAPHYLOCOCCAL BACTERAEMIA
     Dosage: 2000 MG, 1 IN 1 DAY
     Route: 042
     Dates: start: 20141118
  21. POLYETHYLENE GLYCOL [Concomitant]
     Active Substance: POLYETHYLENE GLYCOLS
     Indication: CONSTIPATION
     Dosage: 17 G, 1 IN 1 DAY
     Route: 048
     Dates: start: 20141120
  22. SENOKOT-S [Concomitant]
     Active Substance: DOCUSATE SODIUM\SENNOSIDES
     Indication: CONSTIPATION
     Dosage: 2 DOSE(S), 2 IN 1 DAY
     Route: 048
     Dates: start: 20141125
  23. LACTULOSE. [Concomitant]
     Active Substance: LACTULOSE
     Indication: CONSTIPATION
     Dosage: 30 ML, UNK
     Route: 048
     Dates: start: 20141125
  24. MAGNESIUM CITRATE. [Concomitant]
     Active Substance: MAGNESIUM CITRATE
     Indication: CONSTIPATION
     Dosage: UNK
     Route: 048
     Dates: start: 20141126
  25. IPRATROPIUM [Concomitant]
     Active Substance: IPRATROPIUM
     Indication: CHRONIC OBSTRUCTIVE PULMONARY DISEASE
     Dosage: 2.5 ML, UNK
     Route: 045
     Dates: start: 20141127
  26. NIFEDIPINE. [Concomitant]
     Active Substance: NIFEDIPINE
     Indication: HYPERTENSION
     Dosage: 30 MG, 1 IN 1 DAY
     Route: 048
     Dates: start: 20141118
  27. DACOGEN [Suspect]
     Active Substance: DECITABINE
     Indication: ACUTE MYELOID LEUKAEMIA
     Dosage: DAY 1 THRU DAY 5 OF EACH CYCLE FOR A MINIMUM OF 4 CYCLES (1 IN HOUR)
     Route: 042
     Dates: start: 20141120, end: 20141124
  28. ENTACAPONE. [Concomitant]
     Active Substance: ENTACAPONE
     Indication: PARKINSON^S DISEASE
     Dosage: 200 MG, UNK
     Route: 048
     Dates: start: 20141117
  29. MAGNESIUM HYDROXIDE. [Concomitant]
     Active Substance: MAGNESIUM HYDROXIDE
     Indication: CONSTIPATION
     Dosage: 10 ML, UNK
     Route: 048
     Dates: start: 20141123
  30. RENAGEL [Concomitant]
     Active Substance: SEVELAMER HYDROCHLORIDE
     Indication: HYPERPHOSPHATAEMIA
     Dosage: 800 MG, 3 IN 1 DAY
     Route: 048
     Dates: start: 20141125
  31. RENAGEL [Concomitant]
     Active Substance: SEVELAMER HYDROCHLORIDE
     Dosage: 1600 MG, 3 IN 1 DAY
     Route: 048
     Dates: start: 20141126
  32. VALTREX [Concomitant]
     Active Substance: VALACYCLOVIR HYDROCHLORIDE
     Indication: ANTIVIRAL PROPHYLAXIS
     Dosage: 500 MG, 1 IN 1 DAY
     Route: 048
     Dates: start: 20141126
  33. GANCICLOVIR. [Concomitant]
     Active Substance: GANCICLOVIR
     Indication: PROPHYLAXIS
     Dosage: 350 MG, UNK
     Route: 042
     Dates: start: 20141129
  34. GUAIFENESIN W/DEXTROMETHORPHAN [Concomitant]
     Active Substance: DEXTROMETHORPHAN\GUAIFENESIN
     Indication: COUGH
     Dosage: 10 ML, UNK
     Route: 048
     Dates: start: 20141128

REACTIONS (2)
  - Acute myeloid leukaemia [Not Recovered/Not Resolved]
  - Bacteraemia [Fatal]

NARRATIVE: CASE EVENT DATE: 20141211
